FAERS Safety Report 7084110-9 (Version None)
Quarter: 2010Q4

REPORT INFORMATION
  Report Type: 
  Country: None (occurrence: None)
  Receive Date: 20101104
  Receipt Date: 20101020
  Transmission Date: 20110411
  Serious: Yes (Other)
  Sender: FDA-Public Use
  Company Number: GB-AMGEN-GBRCT2010000928

PATIENT

DRUGS (7)
  1. ETANERCEPT [Suspect]
     Indication: RHEUMATOID ARTHRITIS
     Dosage: 25 MG, 2 TIMES/WK
     Route: 058
     Dates: start: 20030513, end: 20100115
  2. CALCIUM [Concomitant]
     Dosage: UNKNOWN
  3. PROPRANOLOL [Concomitant]
     Dosage: UNKNOWN
  4. GLICLAZIDE [Concomitant]
     Dosage: UNKNOWN
  5. DEOXYCHOLIC ACID/PEPSIN [Concomitant]
     Dosage: UNKNOWN
  6. FOSAMAX [Concomitant]
  7. CO-CODAMOL [Concomitant]
     Dosage: UNKNOWN

REACTIONS (4)
  - HAEMOGLOBIN DECREASED [None]
  - PANCYTOPENIA [None]
  - PLATELET COUNT DECREASED [None]
  - WHITE BLOOD CELL COUNT DECREASED [None]
